FAERS Safety Report 10040221 (Version 1)
Quarter: 2014Q1

REPORT INFORMATION
  Report Type: Spontaneous
  Country: JP (occurrence: JP)
  Receive Date: 20140327
  Receipt Date: 20140327
  Transmission Date: 20141002
  Serious: Yes (Death)
  Sender: FDA-Public Use
  Company Number: JP-ROCHE-1371128

PATIENT
  Age: 94 Year
  Sex: 0

DRUGS (1)
  1. RITUXIMAB [Suspect]
     Indication: LYMPHOMA
     Route: 042

REACTIONS (1)
  - Respiratory failure [Fatal]
